FAERS Safety Report 5217572-X (Version None)
Quarter: 2007Q1

REPORT INFORMATION
  Report Type: 
  Country: None (occurrence: None)
  Receive Date: 20070124
  Receipt Date: 20060405
  Transmission Date: 20070707
  Serious: No
  Sender: FDA-Public Use
  Company Number: US-GLAXOSMITHKLINE-A0600569A

PATIENT
  Age: 54 Year
  Sex: Female

DRUGS (2)
  1. PAXIL [Suspect]
     Dosage: 12.5MG PER DAY
     Route: 048
     Dates: start: 20051207, end: 20060128
  2. LEVAQUIN [Concomitant]

REACTIONS (16)
  - DRUG INEFFECTIVE [None]
  - DRY EYE [None]
  - FOOD ALLERGY [None]
  - HEADACHE [None]
  - INFLUENZA LIKE ILLNESS [None]
  - LARYNGITIS [None]
  - LYMPHADENOPATHY [None]
  - NECK PAIN [None]
  - PHARYNGEAL OEDEMA [None]
  - PHARYNGOLARYNGEAL PAIN [None]
  - SOMNOLENCE [None]
  - THROAT IRRITATION [None]
  - THROAT TIGHTNESS [None]
  - VISION BLURRED [None]
  - VISUAL DISTURBANCE [None]
  - VOMITING [None]
